FAERS Safety Report 11988237 (Version 1)
Quarter: 2016Q1

REPORT INFORMATION
  Report Type: Spontaneous
  Country: US (occurrence: US)
  Receive Date: 20160202
  Receipt Date: 20160202
  Transmission Date: 20160526
  Serious: No
  Sender: FDA-Public Use
  Company Number: US-PFIZER INC-2016003786

PATIENT
  Sex: Female

DRUGS (1)
  1. ADVIL [Suspect]
     Active Substance: IBUPROFEN
     Indication: HEADACHE
     Dosage: UNK

REACTIONS (6)
  - Erythema [Unknown]
  - Blister [Unknown]
  - Urticaria [Unknown]
  - Burning sensation [Unknown]
  - Swelling face [Unknown]
  - Rash [Unknown]
